FAERS Safety Report 9363856 (Version 3)
Quarter: 2013Q3

REPORT INFORMATION
  Report Type: Spontaneous
  Country: SE (occurrence: None)
  Receive Date: 20130618
  Receipt Date: 20130724
  Transmission Date: 20140515
  Serious: Yes (Hospitalization, Other)
  Sender: FDA-Public Use
  Company Number: SE-2013-1703

PATIENT
  Age: 79 Year
  Sex: Male

DRUGS (5)
  1. NAVELBINE [Suspect]
     Indication: LUNG NEOPLASM MALIGNANT
     Dates: start: 20121120
  2. CARBOPLATIN (CARBOPLATIN) [Suspect]
     Indication: LUNG NEOPLASM MALIGNANT
     Dates: start: 20121120
  3. NIFEREX (POLYSACCHARIDE-IRON COMPLEX) [Suspect]
     Indication: PRODUCT USED FOR UNKNOWN INDICATION
  4. ENALAPRIL [Concomitant]
  5. SPIRONOLAKTON (SPIRONOLACTONE) [Concomitant]

REACTIONS (5)
  - Diarrhoea [None]
  - Melaena [None]
  - C-reactive protein increased [None]
  - Hypotension [None]
  - Pulmonary oedema [None]
